FAERS Safety Report 7555701-3 (Version None)
Quarter: 2011Q2

REPORT INFORMATION
  Report Type: 
  Country: None (occurrence: None)
  Receive Date: 20110617
  Receipt Date: 20110609
  Transmission Date: 20111010
  Serious: Yes (Life-Threatening, Hospitalization, Other)
  Sender: FDA-Public Use
  Company Number: US-MERCK-1106USA01177

PATIENT
  Age: 71 Year
  Sex: Female

DRUGS (4)
  1. ZOCOR [Suspect]
     Route: 048
  2. ZETIA [Suspect]
     Route: 048
  3. AMLODIPINE [Concomitant]
     Route: 065
  4. ZOCOR [Suspect]
     Route: 048

REACTIONS (3)
  - RHABDOMYOLYSIS [None]
  - MYOSITIS [None]
  - BURSITIS [None]
